FAERS Safety Report 7821229-6 (Version None)
Quarter: 2011Q4

REPORT INFORMATION
  Report Type: 
  Country: None (occurrence: None)
  Receive Date: 20111018
  Receipt Date: 20110511
  Transmission Date: 20120403
  Serious: No
  Sender: FDA-Public Use
  Company Number: US-ASTRAZENECA-2011SE18326

PATIENT
  Age: 62 Year
  Sex: Male

DRUGS (3)
  1. SYMBICORT [Suspect]
     Indication: CHRONIC OBSTRUCTIVE PULMONARY DISEASE
     Route: 055
  2. SYMBICORT [Suspect]
     Indication: EMPHYSEMA
     Route: 055
  3. NEXIUM [Suspect]
     Route: 048

REACTIONS (3)
  - OXYGEN SUPPLEMENTATION [None]
  - PNEUMONIA [None]
  - SLEEP APNOEA SYNDROME [None]
